FAERS Safety Report 8233605-0 (Version None)
Quarter: 2012Q1

REPORT INFORMATION
  Report Type: 
  Country: None (occurrence: None)
  Receive Date: 20120326
  Receipt Date: 20120319
  Transmission Date: 20120608
  Serious: Yes (Other)
  Sender: FDA-Public Use
  Company Number: PHHY2011AU49469

PATIENT
  Sex: Female

DRUGS (4)
  1. EXJADE [Suspect]
     Indication: IRON OVERLOAD
     Dosage: 500 MG,
     Route: 048
     Dates: start: 20110106
  2. WARFARIN SODIUM [Concomitant]
     Dosage: UNK
  3. CYCLOSPORINE [Concomitant]
     Dosage: 75 MG
  4. CYCLOSPORINE [Concomitant]
     Indication: APLASTIC ANAEMIA
     Dosage: 125 MG/DAY IN DIVIDED DOSE
     Route: 048
     Dates: start: 20090101

REACTIONS (2)
  - KIDNEY INFECTION [None]
  - RENAL FUNCTION TEST ABNORMAL [None]
